FAERS Safety Report 16279826 (Version 2)
Quarter: 2019Q2

REPORT INFORMATION
  Report Type: Spontaneous
  Country: PL (occurrence: PL)
  Receive Date: 20190507
  Receipt Date: 20190510
  Transmission Date: 20190711
  Serious: Yes (Other)
  Sender: FDA-Public Use
  Company Number: PL-ROCHE-2311701

PATIENT
  Sex: Female

DRUGS (2)
  1. RIBAVIRIN. [Suspect]
     Active Substance: RIBAVIRIN
     Indication: HEPATITIS C
     Dosage: LAST ADMINISTRATION OF RIBAVIRIN WAS ON 02/FEB/2018
     Route: 048
     Dates: start: 20171109
  2. SOVALDI [Suspect]
     Active Substance: SOFOSBUVIR
     Indication: HEPATITIS C
     Dosage: LAST ADMINISTRATION OF SOFOSBOVIR WAS ON 02/FEB/2018
     Route: 048
     Dates: start: 20171109

REACTIONS (2)
  - Treatment failure [Unknown]
  - No adverse event [Unknown]

NARRATIVE: CASE EVENT DATE: 20180202
